FAERS Safety Report 7401699-8 (Version None)
Quarter: 2011Q1

REPORT INFORMATION
  Report Type: 
  Country: None (occurrence: None)
  Receive Date: 20110329
  Receipt Date: 20110318
  Transmission Date: 20110831
  Serious: Yes (Hospitalization)
  Sender: FDA-Public Use
  Company Number: TAJPN-11-0191

PATIENT
  Age: 52 Year
  Sex: Female
  Weight: 46 kg

DRUGS (5)
  1. ABRAXANE [Suspect]
     Indication: BREAST CANCER METASTATIC
     Dosage: 250 MG
     Dates: start: 20110218, end: 20110218
  2. DEXAMETHASONE SODIUM PHOSPHATE [Concomitant]
  3. ALOXI [Concomitant]
  4. LAXATIVE (LAXATIVES) [Concomitant]
  5. CRESTOR [Concomitant]

REACTIONS (4)
  - COLITIS ISCHAEMIC [None]
  - FAECALOMA [None]
  - HYPOALBUMINAEMIA [None]
  - ANAEMIA [None]
